FAERS Safety Report 7123667-6 (Version None)
Quarter: 2010Q4

REPORT INFORMATION
  Report Type: 
  Country: None (occurrence: None)
  Receive Date: 20101125
  Receipt Date: 20101112
  Transmission Date: 20110411
  Serious: Yes (Other)
  Sender: FDA-Public Use
  Company Number: BR-ELI_LILLY_AND_COMPANY-BR201011003675

PATIENT
  Sex: Female
  Weight: 60 kg

DRUGS (9)
  1. CYMBALTA [Suspect]
     Indication: DEPRESSION
     Dosage: UNK, UNKNOWN
     Route: 065
     Dates: start: 20100501
  2. METFORMIN HYDROCHLORIDE [Concomitant]
     Indication: DIABETES MELLITUS
     Dosage: 750 MG, UNKNOWN
     Route: 065
  3. BENICAR [Concomitant]
     Indication: HYPERTENSION
     Dosage: 40 MG, UNKNOWN
     Route: 065
  4. GLUCOSAMINE SULFATE W/CHONDROITIN SULFATE [Concomitant]
     Indication: OSTEOARTHRITIS
     Dosage: UNK, UNKNOWN
     Route: 065
  5. MIOSAN [Concomitant]
     Indication: OSTEOARTHRITIS
     Dosage: UNK, UNKNOWN
     Route: 065
  6. PANTOPRAZOLE SODIUM [Concomitant]
     Indication: GASTRIC DISORDER
     Dosage: UNK, UNKNOWN
     Route: 065
  7. FRONTAL [Concomitant]
     Indication: INSOMNIA
     Dosage: 1 MG, UNKNOWN
     Route: 065
  8. LYRICA [Concomitant]
     Indication: FIBROMYALGIA
     Dosage: 75 MG, UNKNOWN
     Route: 065
  9. CALCIUM W/VITAMIN D /00188401/ [Concomitant]
     Indication: CALCIUM DEFICIENCY
     Dosage: UNK, UNKNOWN
     Route: 065

REACTIONS (6)
  - ASTHENOPIA [None]
  - DEPRESSION [None]
  - FEAR [None]
  - GASTROINTESTINAL BACTERIAL INFECTION [None]
  - TENSION [None]
  - TREMOR [None]
